FAERS Safety Report 13387739 (Version 2)
Quarter: 2017Q3

REPORT INFORMATION
  Report Type: Report from Study
  Country: US (occurrence: US)
  Receive Date: 20170330
  Receipt Date: 20170705
  Transmission Date: 20171127
  Serious: Yes (Other)
  Sender: FDA-Public Use
  Company Number: US-ACTELION-A-US2016-137096

PATIENT
  Age: 57 Year
  Sex: Male

DRUGS (2)
  1. VALCHLOR [Suspect]
     Active Substance: MECHLORETHAMINE
     Dosage: UNK, EVERY OTHER DAY INCREASE OR DECREASE AS TOLERATED
     Route: 061
  2. VALCHLOR [Suspect]
     Active Substance: MECHLORETHAMINE
     Indication: MYCOSIS FUNGOIDES
     Dosage: UNK UNK, QD
     Route: 061
     Dates: start: 2015

REACTIONS (10)
  - Influenza [Unknown]
  - Influenza like illness [Unknown]
  - Unevaluable event [Unknown]
  - Fall [Unknown]
  - Dysarthria [Unknown]
  - Ankle fracture [Unknown]
  - Dizziness [Unknown]
  - Pruritus [Unknown]
  - Nasopharyngitis [Unknown]
  - Lower limb fracture [Unknown]
